FAERS Safety Report 14074948 (Version 7)
Quarter: 2017Q4

REPORT INFORMATION
  Report Type: Report from Study
  Country: CN (occurrence: CN)
  Receive Date: 20171010
  Receipt Date: 20171225
  Transmission Date: 20180321
  Serious: Yes (Death, Hospitalization, Disabling, Other)
  Sender: FDA-Public Use
  Company Number: CN-ROCHE-1983529

PATIENT
  Age: 65 Year
  Sex: Male
  Weight: 45 kg

DRUGS (18)
  1. ORNITHINE [Concomitant]
     Active Substance: ORNITHINE
     Indication: HYPOPROTEINAEMIA
     Route: 042
     Dates: start: 20170830, end: 20170904
  2. LANSOPRAZOLE. [Concomitant]
     Active Substance: LANSOPRAZOLE
     Route: 065
     Dates: start: 20171116, end: 20171117
  3. IPRATROPIUM BROMIDE/SALBUTAMOL [Concomitant]
  4. GLUTAMINE [Concomitant]
     Active Substance: GLUTAMINE
     Route: 065
     Dates: start: 20171116, end: 20171122
  5. ALTEPLASE. [Suspect]
     Active Substance: ALTEPLASE
     Indication: ISCHAEMIC STROKE
     Dosage: THIS WAS THE MOST RECENT DOSE OF ALTEPLASE
     Route: 042
     Dates: start: 20170814, end: 20170814
  6. EPIRUBICIN [Concomitant]
     Active Substance: EPIRUBICIN
     Indication: DUODENAL ULCER
     Route: 065
     Dates: start: 20170814, end: 20170830
  7. ROSUVASTATIN CALCIUM. [Concomitant]
     Active Substance: ROSUVASTATIN CALCIUM
     Route: 065
     Dates: start: 20170814
  8. IPRATROPIUM BROMIDE. [Concomitant]
     Active Substance: IPRATROPIUM BROMIDE
     Route: 065
     Dates: start: 20170830, end: 20170904
  9. VANCOMYCIN HYDROCHLORIDE. [Concomitant]
     Active Substance: VANCOMYCIN HYDROCHLORIDE
     Indication: INFECTION
     Dosage: 10 MILLION UNIT
     Route: 042
     Dates: start: 20170831, end: 20170904
  10. CITICOLINE [Concomitant]
     Active Substance: CITICOLINE
     Route: 065
     Dates: start: 20171116, end: 20171117
  11. AMIKACIN SULFATE. [Concomitant]
     Active Substance: AMIKACIN SULFATE
     Indication: FUNGAL INFECTION
     Route: 042
     Dates: start: 20170830, end: 20170830
  12. IMIPENEM [Concomitant]
     Active Substance: IMIPENEM
     Indication: INFECTION
     Route: 042
     Dates: start: 20170830, end: 20170904
  13. AZITHROMYCIN ANHYDROUS. [Concomitant]
     Active Substance: AZITHROMYCIN ANHYDROUS
     Indication: INFECTION
     Route: 065
     Dates: start: 20170822, end: 20170822
  14. IBUPROFEN. [Concomitant]
     Active Substance: IBUPROFEN
     Indication: PYREXIA
     Route: 065
     Dates: start: 20170904, end: 20170904
  15. ALANYL-GLUTAMINE [Concomitant]
     Route: 042
     Dates: start: 20170830, end: 20170904
  16. SALBUTAMOL [Concomitant]
     Active Substance: ALBUTEROL
     Route: 065
     Dates: start: 20170830, end: 20170904
  17. GLYCOLIC ACID [Concomitant]
     Active Substance: GLYCOLIC ACID
     Indication: LIVER INJURY
     Route: 042
     Dates: start: 20170830, end: 20170904
  18. AZITHROMYCIN ANHYDROUS. [Concomitant]
     Active Substance: AZITHROMYCIN ANHYDROUS
     Indication: LUNG INFECTION
     Route: 065
     Dates: start: 20170914

REACTIONS (9)
  - Respiratory failure [Fatal]
  - Arrhythmia [Unknown]
  - Septic shock [Fatal]
  - Cerebral infarction [Recovered/Resolved with Sequelae]
  - Haemorrhage intracranial [Recovered/Resolved with Sequelae]
  - Pneumonia [Fatal]
  - Lung infection [Unknown]
  - Lung infection [Recovered/Resolved]
  - Sinus tachycardia [Unknown]

NARRATIVE: CASE EVENT DATE: 20170815
